FAERS Safety Report 9397114 (Version 3)
Quarter: 2013Q3

REPORT INFORMATION
  Report Type: Spontaneous
  Country: US (occurrence: US)
  Receive Date: 20130712
  Receipt Date: 20130820
  Transmission Date: 20140515
  Serious: No
  Sender: FDA-Public Use
  Company Number: US-PFIZER INC-2013205284

PATIENT
  Sex: Female

DRUGS (2)
  1. LIPITOR [Suspect]
     Dosage: 40 MG, UNK
     Dates: start: 2005
  2. LIPITOR [Suspect]
     Dosage: 20 MG, UNK

REACTIONS (1)
  - Hepatic steatosis [Unknown]
